FAERS Safety Report 25468892 (Version 1)
Quarter: 2025Q2

REPORT INFORMATION
  Report Type: Report from Study
  Country: US (occurrence: US)
  Receive Date: 20250623
  Receipt Date: 20250623
  Transmission Date: 20250716
  Serious: Yes (Hospitalization)
  Sender: VERONA PHARMA
  Company Number: US-VERONA PHARMA-VER-006269

PATIENT
  Sex: Male

DRUGS (3)
  1. OHTUVAYRE [Suspect]
     Active Substance: ENSIFENTRINE
     Indication: Chronic obstructive pulmonary disease
     Dosage: 3 MILLIGRAM, BID
     Dates: start: 20250515, end: 20250603
  2. BREZTRI [Concomitant]
     Active Substance: BUDESONIDE\FORMOTEROL\GLYCOPYRROLATE
     Indication: Product used for unknown indication
  3. LEVALBUTEROL [Concomitant]
     Active Substance: LEVALBUTEROL
     Indication: Product used for unknown indication

REACTIONS (6)
  - Panic attack [Recovering/Resolving]
  - Cough [Unknown]
  - Dyspnoea [Recovering/Resolving]
  - Abnormal behaviour [Recovering/Resolving]
  - Feeling abnormal [Recovering/Resolving]
  - Insomnia [Recovering/Resolving]
